FAERS Safety Report 19934197 (Version 1)
Quarter: 2021Q4

REPORT INFORMATION
  Report Type: Spontaneous
  Country: CN (occurrence: CN)
  Receive Date: 20211008
  Receipt Date: 20211008
  Transmission Date: 20220303
  Serious: Yes (Hospitalization, Other)
  Sender: FDA-Public Use
  Company Number: 2021A756493

PATIENT
  Age: 31558 Day
  Sex: Female
  Weight: 60.7 kg

DRUGS (1)
  1. OSIMERTINIB MESYLATE [Suspect]
     Active Substance: OSIMERTINIB MESYLATE
     Indication: Neoplasm
     Route: 048
     Dates: start: 20210604, end: 20210928

REACTIONS (1)
  - Cardiotoxicity [Recovering/Resolving]

NARRATIVE: CASE EVENT DATE: 20210925
